FAERS Safety Report 10573058 (Version 4)
Quarter: 2014Q4

REPORT INFORMATION
  Report Type: Spontaneous
  Country: JP (occurrence: JP)
  Receive Date: 20141110
  Receipt Date: 20141203
  Transmission Date: 20150529
  Serious: Yes (Death, Other)
  Sender: FDA-Public Use
  Company Number: JP-GLAXOSMITHKLINE-JP2014JPN017367

PATIENT
  Age: 73 Year
  Sex: Female
  Weight: 47 kg

DRUGS (22)
  1. PREDNISOLONE. [Suspect]
     Active Substance: PREDNISOLONE
     Dosage: UNK UNK, QD
     Route: 048
     Dates: start: 20140809
  2. ALFAROL [Concomitant]
     Active Substance: ALFACALCIDOL
     Dosage: UNK
     Dates: start: 20140716, end: 20141015
  3. REVOLADE [Suspect]
     Active Substance: ELTROMBOPAG
     Dosage: 25 MG, QD
     Route: 048
     Dates: start: 20140822, end: 20140828
  4. PREDNISOLONE. [Suspect]
     Active Substance: PREDNISOLONE
     Indication: THROMBOCYTOPENIC PURPURA
     Dosage: 5 MG, QD
     Route: 048
     Dates: start: 20140715, end: 20141025
  5. FRANDOL S [Concomitant]
     Dosage: UNK
     Dates: start: 20140731
  6. SANMEL [Concomitant]
     Dosage: UNK
     Dates: start: 20141009
  7. NEXIUM [Concomitant]
     Active Substance: ESOMEPRAZOLE MAGNESIUM
     Dosage: UNK
     Dates: start: 20140716, end: 20141015
  8. REVOLADE [Suspect]
     Active Substance: ELTROMBOPAG
     Dosage: 50 MG, QD
     Route: 048
     Dates: start: 20140905, end: 20141025
  9. PREDNISOLONE. [Suspect]
     Active Substance: PREDNISOLONE
     Indication: THROMBOCYTOPENIC PURPURA
     Dosage: 2 MG, QD
     Route: 048
     Dates: start: 20140930, end: 20141025
  10. AMLODIPINE [Concomitant]
     Active Substance: AMLODIPINE BESYLATE
     Dosage: UNK
     Dates: start: 20140716
  11. REVOLADE [Suspect]
     Active Substance: ELTROMBOPAG
     Indication: THROMBOCYTOPENIC PURPURA
     Dosage: 50 MG, QD
     Route: 048
     Dates: start: 20140809, end: 20140821
  12. PREDNISOLONE. [Suspect]
     Active Substance: PREDNISOLONE
     Dosage: 25 MG, QD
     Route: 048
     Dates: start: 20140725
  13. PREDNISOLONE. [Suspect]
     Active Substance: PREDNISOLONE
     Dosage: UNK MG, QD
     Route: 048
     Dates: start: 20140905, end: 20141025
  14. GLOVENIN [Concomitant]
     Dosage: UNK G, UNK
     Dates: start: 20140715, end: 20140719
  15. HALCION [Concomitant]
     Active Substance: TRIAZOLAM
     Dosage: UNK
     Dates: start: 20140817, end: 20141015
  16. PREDNISOLONE. [Suspect]
     Active Substance: PREDNISOLONE
     Dosage: UNK MG, UNK
     Route: 048
     Dates: start: 20140818
  17. BAKTAR [Concomitant]
     Active Substance: SULFAMETHOXAZOLE\TRIMETHOPRIM
     Dosage: UNK
     Dates: start: 20140716
  18. LIPOVAS [Concomitant]
     Active Substance: PRAVASTATIN SODIUM
     Dosage: UNK
     Dates: start: 20140716, end: 20141015
  19. BONALON [Concomitant]
     Active Substance: ALENDRONATE SODIUM
     Dosage: UNK
     Dates: start: 20140716
  20. REVOLADE [Suspect]
     Active Substance: ELTROMBOPAG
     Dosage: 37.5 MG, QD
     Route: 048
     Dates: start: 20140829, end: 20140904
  21. GLOVENIN [Concomitant]
     Dosage: UNK G, UNK
     Dates: start: 20140809, end: 20140813
  22. SOLU-MEDROL [Concomitant]
     Active Substance: METHYLPREDNISOLONE SODIUM SUCCINATE
     Indication: THROMBOCYTOPENIC PURPURA
     Dosage: 500 MG, UNK
     Dates: start: 20140818, end: 20140820

REACTIONS (24)
  - Cardiac arrest [Unknown]
  - Dizziness postural [Unknown]
  - Hypoaesthesia [Unknown]
  - Vertigo [Unknown]
  - Venous thrombosis limb [Fatal]
  - Depressed level of consciousness [Unknown]
  - Ecchymosis [Recovering/Resolving]
  - Oedema [Unknown]
  - Oliguria [Unknown]
  - Fall [Unknown]
  - Lymphadenopathy [Unknown]
  - Tremor [Unknown]
  - Chest pain [Unknown]
  - Muscular weakness [Unknown]
  - Insomnia [Recovering/Resolving]
  - Dyspnoea exertional [Unknown]
  - Chest discomfort [Unknown]
  - Splenomegaly [Unknown]
  - Pulmonary embolism [Fatal]
  - Hyperventilation [Unknown]
  - Muscular weakness [Recovering/Resolving]
  - Hypoxia [Unknown]
  - Insomnia [Unknown]
  - Fatigue [Unknown]

NARRATIVE: CASE EVENT DATE: 20140827
